FAERS Safety Report 5869222-7 (Version None)
Quarter: 2008Q3

REPORT INFORMATION
  Report Type: 
  Country: None (occurrence: None)
  Receive Date: 20080903
  Receipt Date: 20080825
  Transmission Date: 20090109
  Serious: Yes (Other)
  Sender: FDA-Public Use
  Company Number: BR-ELI_LILLY_AND_COMPANY-BR200808005281

PATIENT
  Sex: Male
  Weight: 97 kg

DRUGS (9)
  1. BYETTA [Suspect]
     Indication: TYPE 2 DIABETES MELLITUS
     Dosage: 5 UG, 2/D
     Route: 058
     Dates: start: 20080701, end: 20080730
  2. BYETTA [Suspect]
     Dosage: 10 UG, 2/D
     Route: 058
     Dates: start: 20080731, end: 20080826
  3. GLIFAGE [Concomitant]
     Indication: TYPE 2 DIABETES MELLITUS
     Dosage: 500 MG, 2/D
     Route: 065
  4. RIVOTRIL [Concomitant]
     Indication: MENTAL DISORDER
     Dosage: 1.5 MG, DAILY (1/D)
     Route: 065
  5. CLOZAPINE [Concomitant]
     Indication: MENTAL DISORDER
     Dosage: 100 MG, 2/D
     Route: 065
  6. BENERVA [Concomitant]
     Dosage: UNK, UNKNOWN
     Route: 065
  7. CARBOLITIUM [Concomitant]
     Dosage: 900 MG, 2/D
     Route: 065
  8. CITONEURIN [Concomitant]
     Dosage: UNK, OTHER
     Route: 065
  9. ENDOFOLIN [Concomitant]
     Dosage: UNK, DAILY (1/D)
     Route: 065

REACTIONS (5)
  - ACTIVITIES OF DAILY LIVING IMPAIRED [None]
  - HYPOAESTHESIA [None]
  - MUSCULAR WEAKNESS [None]
  - NAUSEA [None]
  - PARAESTHESIA [None]
